FAERS Safety Report 9119661 (Version 2)
Quarter: 2013Q1

REPORT INFORMATION
  Report Type: Spontaneous
  Country: US (occurrence: None)
  Receive Date: 20130130
  Receipt Date: 20130215
  Transmission Date: 20140127
  Serious: Yes (Hospitalization)
  Sender: FDA-Public Use
  Company Number: 2013AP000706

PATIENT
  Age: 59 Year
  Sex: Female

DRUGS (15)
  1. METFORMIN [Suspect]
     Indication: TYPE 2 DIABETES MELLITUS
  2. LEVOTHYROXINE SODIUM [Concomitant]
  3. INSULIN DETEMIR [Concomitant]
  4. INSULIN ASPART [Concomitant]
  5. ALENDRONIC ACID [Concomitant]
  6. ASPIRIN [Concomitant]
  7. LISINOPRIL [Concomitant]
  8. SIMVASTATIN [Concomitant]
  9. CYANOCOBALAMIN [Concomitant]
  10. CITALOPRAM [Concomitant]
  11. PROMETHAZINE [Concomitant]
  12. LORAZEPAM [Concomitant]
  13. PROCET [Concomitant]
  14. ASCORBIC ACID [Concomitant]
  15. CALCIUM W/VITAMIN D NOS [Concomitant]

REACTIONS (2)
  - Pancreatitis chronic [None]
  - Condition aggravated [None]
